FAERS Safety Report 22009528 (Version 1)
Quarter: 2023Q1

REPORT INFORMATION
  Report Type: Spontaneous
  Country: US (occurrence: US)
  Receive Date: 20230220
  Receipt Date: 20230220
  Transmission Date: 20230417
  Serious: No
  Sender: FDA-Public Use
  Company Number: US-GE HEALTHCARE-2022CSU009132

PATIENT
  Age: 77 Year
  Sex: Male

DRUGS (3)
  1. OMNIPAQUE [Suspect]
     Active Substance: IOHEXOL
     Indication: Computerised tomogram abdomen
     Dosage: 20 GM, SINGLE
     Route: 042
  2. OMNIPAQUE [Suspect]
     Active Substance: IOHEXOL
     Indication: Product used for unknown indication
  3. SALINE [Concomitant]
     Active Substance: SODIUM CHLORIDE
     Dosage: UNK, SINGLE
     Route: 040

REACTIONS (1)
  - Infusion site extravasation [Unknown]
